FAERS Safety Report 6358633-1 (Version None)
Quarter: 2009Q3

REPORT INFORMATION
  Report Type: 
  Country: None (occurrence: None)
  Receive Date: 20090914
  Receipt Date: 20090828
  Transmission Date: 20100115
  Serious: Yes (Other)
  Sender: FDA-Public Use
  Company Number: AUR-APL-2009-00590

PATIENT
  Age: 47 Year
  Sex: Female

DRUGS (11)
  1. ATENOLOL [Suspect]
     Dosage: 50MG - BID
  2. HYDROCHLOROTHIAZIDE [Suspect]
     Dosage: 50MG - QHS
  3. AMRIX [Suspect]
     Dosage: 30MG - DAILY
     Dates: start: 20090429
  4. LYRICA [Suspect]
     Dosage: 100MG - TID
  5. AMITRIPTYLINE [Suspect]
     Dosage: 50MG - DAILY
  6. SOMA [Suspect]
     Dosage: 350MG - 2 OR 3 PER DAY
  7. ALLEGRA [Suspect]
     Dosage: 180MG - DAILY
  8. FLUTICASONE PROPIONATE [Suspect]
     Dosage: NASAL
     Route: 045
  9. LORCET-HD [Suspect]
     Dosage: 7.5MG - 3 X DAILY
  10. PROTONIX [Suspect]
     Dosage: 40MG - DAILY
  11. XANAX [Concomitant]

REACTIONS (4)
  - DEPRESSED LEVEL OF CONSCIOUSNESS [None]
  - DYSPNOEA [None]
  - FEELING ABNORMAL [None]
  - TREATMENT NONCOMPLIANCE [None]
